FAERS Safety Report 8602939-X (Version None)
Quarter: 2012Q3

REPORT INFORMATION
  Report Type: 
  Country: None (occurrence: None)
  Receive Date: 20120817
  Receipt Date: 20120816
  Transmission Date: 20120928
  Serious: Yes (Death, Hospitalization)
  Sender: FDA-Public Use
  Company Number: US-BRACCO-008311

PATIENT
  Sex: Female
  Weight: 100 kg

DRUGS (13)
  1. ISOVUE-M 200 [Suspect]
     Indication: SPINAL MYELOGRAM
     Route: 037
     Dates: start: 20120713, end: 20120713
  2. ISOVUE-M 200 [Suspect]
     Indication: SPINAL COLUMN STENOSIS
     Route: 037
     Dates: start: 20120713, end: 20120713
  3. SYNTHROID [Concomitant]
  4. AMITRIPTYLINE HCL [Concomitant]
  5. BETHANECHOL [Concomitant]
  6. AMLODIPINE [Concomitant]
  7. ISOVUE-M 200 [Suspect]
     Indication: BACK PAIN
     Route: 037
     Dates: start: 20120713, end: 20120713
  8. ISOVUE-M 200 [Suspect]
     Indication: PAIN IN EXTREMITY
     Route: 037
     Dates: start: 20120713, end: 20120713
  9. ATENOLOL [Concomitant]
  10. VITAMIN B12 NOS [Concomitant]
  11. PRAMIPEXOLE DIHYCHLORIDE [Concomitant]
  12. TOPIRAMATE [Concomitant]
  13. CELEBREX [Concomitant]

REACTIONS (1)
  - BRAIN OEDEMA [None]
